FAERS Safety Report 23985926 (Version 1)
Quarter: 2024Q2

REPORT INFORMATION
  Report Type: Spontaneous
  Country: CN (occurrence: CN)
  Receive Date: 20240618
  Receipt Date: 20240618
  Transmission Date: 20240716
  Serious: Yes (Hospitalization)
  Sender: FDA-Public Use
  Company Number: CN-PFIZER INC-PV202400079660

PATIENT
  Age: 42 Year
  Sex: Female
  Weight: 52 kg

DRUGS (4)
  1. METHOTREXATE SODIUM [Suspect]
     Active Substance: METHOTREXATE SODIUM
     Indication: Ectopic pregnancy
     Dosage: 73.000 MG, 1X/DAY
     Route: 030
     Dates: start: 20240527, end: 20240527
  2. METHOTREXATE SODIUM [Suspect]
     Active Substance: METHOTREXATE SODIUM
     Dosage: 73.000 MG, 1X/DAY
     Route: 030
     Dates: start: 20240531, end: 20240531
  3. METHOTREXATE SODIUM [Suspect]
     Active Substance: METHOTREXATE SODIUM
     Dosage: 73.000 MG, 1X/DAY
     Route: 041
     Dates: start: 20240603, end: 20240603
  4. MIFEPRISTONE [Concomitant]
     Active Substance: MIFEPRISTONE
     Indication: Ectopic pregnancy
     Dosage: 50.000 MG, 2X/DAY
     Route: 048
     Dates: start: 20240526, end: 20240608

REACTIONS (4)
  - Nausea [Recovering/Resolving]
  - Noninfective gingivitis [Recovering/Resolving]
  - Hepatic function abnormal [Recovering/Resolving]
  - Off label use [Unknown]

NARRATIVE: CASE EVENT DATE: 20240606
